FAERS Safety Report 18518568 (Version 3)
Quarter: 2022Q4

REPORT INFORMATION
  Report Type: Spontaneous
  Country: SE (occurrence: SE)
  Receive Date: 20201118
  Receipt Date: 20221212
  Transmission Date: 20230112
  Serious: Yes (Other)
  Sender: FDA-Public Use
  Company Number: SE-ALLERGAN-2044464US

PATIENT
  Sex: Female
  Weight: 80 kg

DRUGS (7)
  1. BOTOX [Suspect]
     Active Substance: ONABOTULINUMTOXINA
     Indication: Hypotonia
     Dosage: UNK UNK, SINGLE
  2. CARBIDOPA\LEVODOPA [Suspect]
     Active Substance: CARBIDOPA\LEVODOPA
     Indication: Parkinson^s disease
     Dosage: CURRENT DOSAGE: CONTINUOUS DOSE 07AM - 05PM: 7.0ML/H, EXTRA DOSE: 2.0ML, INTESTINAL GEL
     Dates: start: 20221201
  3. CARBIDOPA\LEVODOPA [Suspect]
     Active Substance: CARBIDOPA\LEVODOPA
     Dosage: CURRENT DOSAGE: THERAPY DURATION: WENT TO 24 HOURS, INTESTINAL GEL
     Dates: start: 20220615
  4. CARBIDOPA\LEVODOPA [Suspect]
     Active Substance: CARBIDOPA\LEVODOPA
     Dosage: CURRENT DOSAGE: CONTINUOUS DOSE 05PM - 10PM: 7.5ML/H, CONTINUOUS DOSE NIGHT: 6.0ML/H, INTESTINAL GEL
     Dates: start: 20220615
  5. CARBIDOPA\LEVODOPA [Suspect]
     Active Substance: CARBIDOPA\LEVODOPA
     Dosage: CURRENT DOSAGE: MORNING DOSE: 5ML, CONTINUOUS DOSE 07AM - 05PM: 6.5ML/H, INTESTINAL GEL
     Dates: start: 20220615
  6. CARBIDOPA\LEVODOPA [Suspect]
     Active Substance: CARBIDOPA\LEVODOPA
     Dosage: THERAPY DURATION: REMAINED AT 16H
  7. CARBIDOPA\LEVODOPA [Suspect]
     Active Substance: CARBIDOPA\LEVODOPA
     Dosage: 100 ML, UNK
     Dates: start: 20140609

REACTIONS (20)
  - Kyphosis [Recovered/Resolved]
  - Kyphosis [Unknown]
  - Abdominal discomfort [Not Recovered/Not Resolved]
  - Musculoskeletal discomfort [Not Recovered/Not Resolved]
  - Musculoskeletal discomfort [Unknown]
  - Back pain [Not Recovered/Not Resolved]
  - Musculoskeletal stiffness [Not Recovered/Not Resolved]
  - Gait disturbance [Not Recovered/Not Resolved]
  - Pain [Recovered/Resolved]
  - Pain [Unknown]
  - Weight increased [Recovered/Resolved]
  - Weight decreased [Recovered/Resolved]
  - Muscle contracture [Not Recovered/Not Resolved]
  - Fall [Recovered/Resolved]
  - Erythema [Not Recovered/Not Resolved]
  - Fungal infection [Not Recovered/Not Resolved]
  - Off label use [Unknown]
  - Abdominal pain [Not Recovered/Not Resolved]
  - Muscular weakness [Not Recovered/Not Resolved]
  - Drug ineffective for unapproved indication [Unknown]

NARRATIVE: CASE EVENT DATE: 20180101
